FAERS Safety Report 8974246 (Version 1)
Quarter: 2012Q4

REPORT INFORMATION
  Report Type: Spontaneous
  Country: NZ (occurrence: None)
  Receive Date: 20121214
  Receipt Date: 20121214
  Transmission Date: 20130627
  Serious: Yes (Hospitalization, Disabling)
  Sender: FDA-Public Use
  Company Number: 1524551

PATIENT
  Age: 27 Year
  Sex: Female

DRUGS (2)
  1. FENTANYL CITRATE [Suspect]
     Indication: CAESAREAN SECTION
     Route: 037
  2. BUPIVACAINE [Suspect]
     Indication: CAESAREAN SECTION
     Route: 037

REACTIONS (21)
  - Arachnoiditis [None]
  - Maternal exposure during delivery [None]
  - Procedural pain [None]
  - Hypotension [None]
  - Procedural headache [None]
  - Blood pressure increased [None]
  - Pre-eclampsia [None]
  - Hydrocephalus [None]
  - Spinal cord disorder [None]
  - Acquired syringomyelia [None]
  - Nervous system disorder [None]
  - Paraplegia [None]
  - Herpes zoster [None]
  - General physical health deterioration [None]
  - Wheelchair user [None]
  - Impaired work ability [None]
  - Activities of daily living impaired [None]
  - Iatrogenic injury [None]
  - Subarachnoid haemorrhage [None]
  - Product contamination [None]
  - Wrong technique in drug usage process [None]
